FAERS Safety Report 4377680-2 (Version None)
Quarter: 2004Q2

REPORT INFORMATION
  Report Type: 
  Country: None (occurrence: None)
  Receive Date: 20040615
  Receipt Date: 20040610
  Transmission Date: 20050107
  Serious: Yes (Hospitalization)
  Sender: FDA-Public Use
  Company Number: ES-ROCHE-370771

PATIENT
  Age: 38 Year
  Sex: Female

DRUGS (2)
  1. ANEXATE [Suspect]
     Dosage: FORM REPORTED AS VIAL STRENGTH 0.5 MG / 5 ML
     Route: 042
     Dates: start: 20040409, end: 20040410
  2. PHENCYCLIDINE [Suspect]
     Indication: DRUG DEPENDENCE
     Route: 065

REACTIONS (2)
  - ATRIOVENTRICULAR BLOCK [None]
  - ATRIOVENTRICULAR BLOCK COMPLETE [None]
